FAERS Safety Report 8181456-8 (Version None)
Quarter: 2012Q1

REPORT INFORMATION
  Report Type: 
  Country: None (occurrence: None)
  Receive Date: 20120302
  Receipt Date: 20120228
  Transmission Date: 20120608
  Serious: Yes (Other)
  Sender: FDA-Public Use
  Company Number: US-PFIZER INC-2012052996

PATIENT
  Sex: Male
  Weight: 97.506 kg

DRUGS (5)
  1. SEROQUEL [Suspect]
     Indication: DEPRESSION
     Dosage: 300 MG, DAILY
  2. SEROQUEL [Suspect]
     Dosage: 600 MG DAILY
  3. PRISTIQ [Suspect]
     Indication: DEPRESSION
     Dosage: 50 MG, DAILY
     Dates: start: 20120201
  4. WELLBUTRIN [Suspect]
     Indication: DEPRESSION
     Dosage: UNK
  5. LEXAPRO [Suspect]
     Indication: DEPRESSION
     Dosage: UNK

REACTIONS (4)
  - SUICIDAL IDEATION [None]
  - MOOD SWINGS [None]
  - PARANOIA [None]
  - INSOMNIA [None]
